FAERS Safety Report 5046857-5 (Version None)
Quarter: 2006Q2

REPORT INFORMATION
  Report Type: 
  Country: None (occurrence: None)
  Receive Date: 20060628
  Receipt Date: 20060621
  Transmission Date: 20061013
  Serious: Yes (Hospitalization)
  Sender: FDA-Public Use
  Company Number: CAWYE835127JUN06

PATIENT
  Age: 58 Year
  Sex: Female

DRUGS (3)
  1. RAPAMUNE [Suspect]
     Indication: RENAL TRANSPLANT
     Dosage: 3 MG 1X PER 1 DAY
     Route: 048
  2. CELLCEPT [Concomitant]
  3. CORTICOSTEROIDS [Concomitant]

REACTIONS (1)
  - CROHN'S DISEASE [None]
